FAERS Safety Report 19949193 (Version 6)
Quarter: 2024Q3

REPORT INFORMATION
  Report Type: Spontaneous
  Country: US (occurrence: US)
  Receive Date: 20211013
  Receipt Date: 20240802
  Transmission Date: 20241016
  Serious: Yes (Hospitalization, Disabling, Other)
  Sender: ORGANON
  Company Number: US-ORGANON-O2110USA000864

PATIENT
  Sex: Female
  Weight: 72.57 kg

DRUGS (8)
  1. SINGULAIR [Suspect]
     Active Substance: MONTELUKAST SODIUM
     Dosage: 1 TAB ORAL (PO) DAILY
     Route: 048
     Dates: start: 2007, end: 2008
  2. SINGULAIR [Suspect]
     Active Substance: MONTELUKAST SODIUM
     Dosage: 1 TAB ORAL (PO) DAILY
     Route: 048
     Dates: start: 2013
  3. SINGULAIR [Suspect]
     Active Substance: MONTELUKAST SODIUM
     Dosage: 10 MILLIGRAM, QD
     Route: 048
     Dates: start: 20140916, end: 2019
  4. METFORMIN [Concomitant]
     Active Substance: METFORMIN HYDROCHLORIDE
     Dosage: 500 MILLIGRAM, BID
     Route: 048
  5. B VITAMIN KOMPLEX [Concomitant]
     Dosage: UNK
  6. ARMOUR THYROID [Concomitant]
     Active Substance: THYROID, PORCINE
     Dosage: 15 MILLIGRAM
  7. TOPROL XL [Concomitant]
     Active Substance: METOPROLOL SUCCINATE
     Dosage: 25 MILLIGRAM, QD
     Route: 048
     Dates: end: 20150916
  8. ASPIRIN [Concomitant]
     Active Substance: ASPIRIN
     Dosage: 81 MILLIGRAM, QD
     Route: 048
     Dates: end: 20150916

REACTIONS (19)
  - Neuropsychological symptoms [Not Recovered/Not Resolved]
  - Multiple sclerosis [Unknown]
  - Sleep terror [Not Recovered/Not Resolved]
  - Vision blurred [Unknown]
  - Hypoaesthesia [Unknown]
  - Panic attack [Not Recovered/Not Resolved]
  - Stenosis [Not Recovered/Not Resolved]
  - Tic [Not Recovered/Not Resolved]
  - Anxiety disorder [Not Recovered/Not Resolved]
  - Dysphemia [Not Recovered/Not Resolved]
  - Tremor [Not Recovered/Not Resolved]
  - Hypoaesthesia [Recovering/Resolving]
  - Asthenia [Unknown]
  - Intervertebral disc degeneration [Unknown]
  - Spinal stenosis [Unknown]
  - Neck pain [Unknown]
  - Back pain [Unknown]
  - Paraesthesia [Recovering/Resolving]
  - Pain [Not Recovered/Not Resolved]

NARRATIVE: CASE EVENT DATE: 20080101
